FAERS Safety Report 10239688 (Version 1)
Quarter: 2014Q2

REPORT INFORMATION
  Report Type: Spontaneous
  Country: US (occurrence: US)
  Receive Date: 20140616
  Receipt Date: 20140616
  Transmission Date: 20141212
  Serious: Yes (Disabling)
  Sender: FDA-Public Use
  Company Number: US-MERCK-1406USA007299

PATIENT
  Sex: Male

DRUGS (1)
  1. PROPECIA [Suspect]

REACTIONS (9)
  - Anxiety [Unknown]
  - Sexual dysfunction [Unknown]
  - Libido decreased [Unknown]
  - Erectile dysfunction [Unknown]
  - Ejaculation disorder [Unknown]
  - Reproductive tract disorder [Unknown]
  - Depression [Unknown]
  - Cognitive disorder [Unknown]
  - Ejaculation failure [Unknown]
